FAERS Safety Report 6146463-5 (Version None)
Quarter: 2009Q2

REPORT INFORMATION
  Report Type: 
  Country: None (occurrence: None)
  Receive Date: 20090407
  Receipt Date: 20090331
  Transmission Date: 20091009
  Serious: Yes (Other)
  Sender: FDA-Public Use
  Company Number: A0777156A

PATIENT
  Sex: Male

DRUGS (3)
  1. SERETIDE [Suspect]
     Indication: CHRONIC OBSTRUCTIVE PULMONARY DISEASE
     Dates: start: 20080901
  2. BUDESONIDE [Concomitant]
     Dosage: 64MG UNKNOWN
  3. SALBUTAMOL SULPHATE [Concomitant]

REACTIONS (1)
  - DEAFNESS [None]
